FAERS Safety Report 4614573-7 (Version None)
Quarter: 2005Q2

REPORT INFORMATION
  Report Type: 
  Country: None (occurrence: None)
  Receive Date: 20050307
  Receipt Date: 20041118
  Transmission Date: 20051028
  Serious: No
  Sender: FDA-Public Use
  Company Number: USA041183584

PATIENT
  Age: 67 Year
  Sex: Female
  Weight: 100 kg

DRUGS (5)
  1. ALIMTA [Suspect]
     Indication: NON-SMALL CELL LUNG CANCER STAGE IV
     Dosage: 1000 MG
     Dates: start: 20040928
  2. FOLIC ACID [Concomitant]
  3. VITAMIN B-12 [Concomitant]
  4. PREDNISONE [Concomitant]
  5. BUMEX [Concomitant]

REACTIONS (1)
  - CONJUNCTIVITIS [None]
